FAERS Safety Report 8490036-6 (Version None)
Quarter: 2012Q3

REPORT INFORMATION
  Report Type: 
  Country: None (occurrence: None)
  Receive Date: 20120705
  Receipt Date: 20120628
  Transmission Date: 20120928
  Serious: Yes (Hospitalization, Other)
  Sender: FDA-Public Use
  Company Number: JP-ELI_LILLY_AND_COMPANY-JP201206000484

PATIENT
  Sex: Male

DRUGS (28)
  1. LANTUS [Concomitant]
     Dosage: 30 IU, QD
     Dates: start: 20090130, end: 20090303
  2. LANTUS [Concomitant]
     Dosage: 4 IU, QD
     Dates: start: 20120126, end: 20120126
  3. LANTUS [Concomitant]
     Dosage: 8 IU, QD
     Dates: start: 20120127, end: 20120128
  4. NOVOLIN R [Concomitant]
     Dosage: 57 IU, QD
     Dates: start: 20100831, end: 20100906
  5. APIDRA [Concomitant]
     Dosage: 14 IU, UNK
     Dates: start: 20120114, end: 20120123
  6. LANTUS [Concomitant]
     Dosage: 40 IU, QD
     Dates: start: 20100907, end: 20101014
  7. APIDRA [Concomitant]
     Dosage: 4 IU, TID
     Dates: start: 20120125, end: 20120202
  8. HUMULIN R [Concomitant]
     Dosage: 48 IU, UNK
     Route: 058
     Dates: start: 20081124, end: 20081125
  9. LANTUS [Concomitant]
     Dosage: 46 IU, QD
     Dates: start: 20081206, end: 20081215
  10. LANTUS [Concomitant]
     Dosage: 36 IU, QD
     Dates: start: 20101015, end: 20110616
  11. METFORMIN HCL [Concomitant]
     Dosage: 750 MG, QD
     Dates: start: 20100907, end: 20101014
  12. EXENATIDE [Suspect]
     Indication: TYPE 2 DIABETES MELLITUS
     Dosage: 5 UG, BID
     Route: 058
     Dates: start: 20080509, end: 20081109
  13. HUMULIN R [Concomitant]
     Dosage: 38 IU, UNK
     Route: 058
     Dates: start: 20081120, end: 20081123
  14. LANTUS [Concomitant]
     Dosage: 32 IU, QD
     Dates: start: 20120107, end: 20120108
  15. APIDRA [Concomitant]
     Dosage: 13 IU, UNK
     Dates: start: 20120203
  16. LANTUS [Concomitant]
     Dosage: 30 IU, QD
     Dates: start: 20110617, end: 20120106
  17. LANTUS [Concomitant]
     Dosage: 12 IU, QD
     Dates: start: 20120129
  18. METFORMIN HCL [Concomitant]
     Dosage: 750 MG, QD
     Dates: start: 20110304, end: 20110616
  19. METFORMIN HCL [Concomitant]
     Dosage: 1500 MG, QD
     Dates: start: 20110617, end: 20120108
  20. METFORMIN HCL [Concomitant]
     Dosage: 1500 MG, QD
     Dates: start: 20120114, end: 20120123
  21. APIDRA [Concomitant]
     Dosage: 4 IU, TID
     Dates: start: 20111227, end: 20120113
  22. METFORMIN HCL [Concomitant]
     Dosage: 1500 MG, QD
     Dates: start: 20101015, end: 20110303
  23. HUMULIN R [Concomitant]
     Dosage: 54 IU, UNK
     Route: 058
     Dates: start: 20081126, end: 20081205
  24. LANTUS [Concomitant]
     Dosage: 36 IU, QD
     Dates: start: 20081216, end: 20090129
  25. LANTUS [Concomitant]
     Dosage: 30 IU, QD
     Dates: start: 20120109, end: 20120123
  26. METFORMIN HCL [Concomitant]
     Dosage: 750 MG, QD
     Dates: start: 20081206, end: 20100830
  27. METFORMIN HCL [Concomitant]
     Dosage: 1500 MG, QD
     Dates: start: 20120203
  28. APIDRA [Concomitant]
     Dosage: 2 IU, TID
     Dates: start: 20120124, end: 20120124

REACTIONS (3)
  - METASTASES TO LIVER [None]
  - PANCREATIC CARCINOMA STAGE IV [None]
  - EMPHYSEMA [None]
